FAERS Safety Report 21806584 (Version 1)
Quarter: 2023Q1

REPORT INFORMATION
  Report Type: Spontaneous
  Country: US (occurrence: US)
  Receive Date: 20230102
  Receipt Date: 20230102
  Transmission Date: 20230418
  Serious: No
  Sender: FDA-Public Use
  Company Number: US-TAKEDA-2022TUS103705

PATIENT
  Sex: Female
  Weight: 109 kg

DRUGS (3)
  1. HYQVIA [Suspect]
     Active Substance: HUMAN IMMUNOGLOBULIN G\HYALURONIDASE RECOMBINANT HUMAN
     Indication: Dermatomyositis
     Dosage: 55 GRAM, MONTHLY
     Route: 065
     Dates: start: 20220809
  2. DULOXETINE [Concomitant]
     Active Substance: DULOXETINE
     Dosage: 30 MILLIGRAM
     Route: 065
  3. PANTOPRAZOLE [Concomitant]
     Active Substance: PANTOPRAZOLE
     Dosage: 40 MILLIGRAM
     Route: 065

REACTIONS (2)
  - Pregnancy [Unknown]
  - No adverse event [Unknown]
